FAERS Safety Report 20479781 (Version 1)
Quarter: 2022Q1

REPORT INFORMATION
  Report Type: Spontaneous
  Country: US (occurrence: None)
  Receive Date: 20220215
  Receipt Date: 20220215
  Transmission Date: 20220424
  Serious: Yes (Death)
  Sender: FDA-Public Use
  Company Number: None

PATIENT
  Age: 88 Year
  Sex: Female

DRUGS (1)
  1. XELODA [Suspect]
     Active Substance: CAPECITABINE
     Indication: Gastric cancer
     Dosage: OTHER FREQUENCY : OTHER;?
     Route: 048
     Dates: start: 20210820, end: 20220215

REACTIONS (1)
  - Death [None]

NARRATIVE: CASE EVENT DATE: 20220215
